FAERS Safety Report 9208302 (Version 2)
Quarter: 2013Q2

REPORT INFORMATION
  Report Type: Spontaneous
  Country: BR (occurrence: BR)
  Receive Date: 20130403
  Receipt Date: 20130422
  Transmission Date: 20140414
  Serious: Yes (Hospitalization, Other)
  Sender: FDA-Public Use
  Company Number: BR-009507513-1212BRA006922

PATIENT
  Age: 53 Year
  Sex: Male
  Weight: 67.5 kg

DRUGS (14)
  1. VICTRELIS [Suspect]
     Indication: HEPATITIS C
     Dosage: 800 MG, Q8H
     Route: 048
     Dates: start: 20121103, end: 201301
  2. PEGASYS [Concomitant]
     Indication: HEPATITIS C
     Dosage: UNK UNK, QW
     Route: 058
     Dates: end: 20121128
  3. PEGASYS [Concomitant]
     Dosage: UNK UNK, QW
     Route: 058
  4. RIBAVIRIN (NON-MERCK) [Concomitant]
     Indication: HEPATITIS C
     Dosage: UNK MG, UNKNOWN
     Route: 048
     Dates: start: 20121003, end: 20121226
  5. INTERFERON (UNSPECIFIED) [Concomitant]
     Indication: HEPATITIS C
     Dosage: UNK UNK, QD
     Route: 058
     Dates: start: 20121003, end: 20121226
  6. NOVOLIN [Concomitant]
     Indication: DIABETES MELLITUS
     Dosage: UNK IU, UNK
     Route: 065
     Dates: start: 2007
  7. REVOLADE [Concomitant]
     Indication: PROPHYLAXIS
     Dosage: 1 TABLET, Q8H
     Route: 048
     Dates: start: 201209, end: 201212
  8. FILGRASTIM [Concomitant]
     Indication: PROPHYLAXIS
     Dosage: UNK, QD
     Route: 065
     Dates: start: 201210, end: 201212
  9. OMEPRAZOLE [Concomitant]
     Indication: PROPHYLAXIS
     Dosage: 20 MG, QAM
     Route: 048
     Dates: start: 2004
  10. OMEPRAZOLE [Concomitant]
     Indication: GASTRIC DISORDER
  11. PROPRANOLOL HYDROCHLORIDE [Concomitant]
     Indication: BLOOD PRESSURE MANAGEMENT
     Dosage: 40 MG, QD
     Route: 048
     Dates: start: 2004
  12. PROPRANOLOL HYDROCHLORIDE [Concomitant]
     Indication: PORTAL HYPERTENSION
  13. SPIRONOLACTONE [Concomitant]
     Indication: ASCITES
     Dosage: 100 MG, QD
     Route: 048
  14. SPIRONOLACTONE [Concomitant]
     Indication: DIURETIC THERAPY

REACTIONS (10)
  - Encephalopathy [Recovering/Resolving]
  - Ascites [Not Recovered/Not Resolved]
  - Staphylococcal infection [Recovering/Resolving]
  - Decreased immune responsiveness [Recovering/Resolving]
  - Weight decreased [Recovering/Resolving]
  - Fatigue [Not Recovered/Not Resolved]
  - Diarrhoea [Not Recovered/Not Resolved]
  - Nausea [Recovered/Resolved]
  - Platelet count decreased [Recovered/Resolved]
  - Back pain [Recovering/Resolving]
